FAERS Safety Report 25900767 (Version 4)
Quarter: 2025Q4

REPORT INFORMATION
  Report Type: Spontaneous
  Country: EU (occurrence: EU)
  Receive Date: 20251009
  Receipt Date: 20251022
  Transmission Date: 20260118
  Serious: Yes (Other)
  Sender: AUROBINDO
  Company Number: EU-MLMSERVICE-20250915-PI645123-00255-1

PATIENT
  Age: 68 Year
  Sex: Female

DRUGS (23)
  1. PACLITAXEL [Suspect]
     Active Substance: PACLITAXEL
     Indication: Invasive lobular breast carcinoma
     Dosage: UNK
     Route: 065
     Dates: start: 202407, end: 202410
  2. PACLITAXEL [Suspect]
     Active Substance: PACLITAXEL
     Indication: Metastases to bone
  3. PACLITAXEL [Suspect]
     Active Substance: PACLITAXEL
     Indication: Metastases to gastrointestinal tract
  4. EVEROLIMUS [Suspect]
     Active Substance: EVEROLIMUS
     Indication: Metastasis
     Dosage: UNK
     Route: 065
     Dates: start: 202401
  5. EVEROLIMUS [Suspect]
     Active Substance: EVEROLIMUS
     Indication: Metastatic gastric cancer
  6. EVEROLIMUS [Suspect]
     Active Substance: EVEROLIMUS
     Indication: Breast cancer
  7. EVEROLIMUS [Suspect]
     Active Substance: EVEROLIMUS
     Indication: Invasive lobular breast carcinoma
  8. EVEROLIMUS [Suspect]
     Active Substance: EVEROLIMUS
     Indication: Metastases to gastrointestinal tract
  9. LETROZOLE [Suspect]
     Active Substance: LETROZOLE
     Indication: Metastases to bone
     Dosage: UNK
     Route: 065
     Dates: start: 201508
  10. LETROZOLE [Suspect]
     Active Substance: LETROZOLE
     Indication: Tumour marker increased
  11. LETROZOLE [Suspect]
     Active Substance: LETROZOLE
     Indication: Invasive lobular breast carcinoma
  12. EXEMESTANE [Suspect]
     Active Substance: EXEMESTANE
     Indication: Metastatic gastric cancer
     Dosage: 25 MILLIGRAM, ONCE A DAY
     Route: 065
     Dates: start: 202401
  13. EXEMESTANE [Suspect]
     Active Substance: EXEMESTANE
     Indication: Breast cancer metastatic
  14. EXEMESTANE [Suspect]
     Active Substance: EXEMESTANE
     Indication: Invasive lobular breast carcinoma
  15. EXEMESTANE [Suspect]
     Active Substance: EXEMESTANE
     Indication: Metastases to gastrointestinal tract
  16. TAMOXIFEN [Suspect]
     Active Substance: TAMOXIFEN
     Indication: Metastatic gastric cancer
     Dosage: UNK
     Route: 065
  17. DENOSUMAB [Suspect]
     Active Substance: DENOSUMAB
     Indication: Bone lesion
     Dosage: UNK
     Route: 065
     Dates: start: 201508, end: 2017
  18. FULVESTRANT [Concomitant]
     Active Substance: FULVESTRANT
     Indication: Invasive lobular breast carcinoma
     Dosage: UNK
     Route: 065
     Dates: start: 201912
  19. FULVESTRANT [Concomitant]
     Active Substance: FULVESTRANT
     Indication: Metastases to bone
  20. ABEMACICLIB [Concomitant]
     Active Substance: ABEMACICLIB
     Indication: Invasive lobular breast carcinoma
     Dosage: UNK
     Route: 065
     Dates: start: 201912
  21. ABEMACICLIB [Concomitant]
     Active Substance: ABEMACICLIB
     Indication: Metastases to bone
  22. ESOMEPRAZOLE [Concomitant]
     Active Substance: ESOMEPRAZOLE
     Indication: Gastrooesophageal reflux disease
     Dosage: UNK
     Route: 065
     Dates: start: 202204
  23. ESOMEPRAZOLE [Concomitant]
     Active Substance: ESOMEPRAZOLE
     Indication: Gastritis

REACTIONS (5)
  - Neuropathy peripheral [Unknown]
  - Interstitial lung disease [Unknown]
  - Therapeutic product effect incomplete [Unknown]
  - Therapy partial responder [Unknown]
  - Off label use [Unknown]

NARRATIVE: CASE EVENT DATE: 20240101
